FAERS Safety Report 10475738 (Version 1)
Quarter: 2014Q3

REPORT INFORMATION
  Report Type: Spontaneous
  Country: NL (occurrence: NL)
  Receive Date: 20140925
  Receipt Date: 20140925
  Transmission Date: 20150326
  Serious: Yes (Life-Threatening, Hospitalization, Other)
  Sender: FDA-Public Use
  Company Number: NL-TAKEDA-2014TUS009125

PATIENT
  Age: 19 Year
  Sex: Female

DRUGS (1)
  1. COLCHICINE. [Suspect]
     Active Substance: COLCHICINE
     Indication: PRODUCT USED FOR UNKNOWN INDICATION
     Dosage: 35 MG, UNK
     Route: 065

REACTIONS (5)
  - Multi-organ failure [Recovering/Resolving]
  - Toxicity to various agents [Recovering/Resolving]
  - Suicide attempt [Recovering/Resolving]
  - Intentional overdose [Recovered/Resolved]
  - Haemodynamic instability [Recovering/Resolving]
